FAERS Safety Report 22972982 (Version 2)
Quarter: 2024Q2

REPORT INFORMATION
  Report Type: Spontaneous
  Country: IT (occurrence: IT)
  Receive Date: 20230922
  Receipt Date: 20240618
  Transmission Date: 20240716
  Serious: Yes (Other)
  Sender: FDA-Public Use
  Company Number: IT-TEVA-2023-IT-2925611

PATIENT
  Sex: Male

DRUGS (7)
  1. TESTOSTERONE [Suspect]
     Active Substance: TESTOSTERONE
     Indication: Pituitary tumour
     Route: 065
     Dates: start: 201906, end: 202004
  2. PASIREOTIDE [Concomitant]
     Active Substance: PASIREOTIDE
     Indication: Pituitary tumour
     Route: 065
     Dates: start: 201906
  3. LEVOTHYROXINE [Suspect]
     Active Substance: LEVOTHYROXINE\LEVOTHYROXINE SODIUM
     Indication: Pituitary tumour
     Route: 065
     Dates: start: 201906, end: 202004
  4. TEMOZOLOMIDE [Suspect]
     Active Substance: TEMOZOLOMIDE
     Indication: Pituitary tumour
     Dosage: FROM DAY 1-5 IN 28-DAY CYCLE
     Route: 048
     Dates: start: 201906, end: 202004
  5. CABERGOLINE [Suspect]
     Active Substance: CABERGOLINE
     Indication: Pituitary tumour
     Route: 065
     Dates: start: 201906, end: 202004
  6. FLUDROCORTISONE [Suspect]
     Active Substance: FLUDROCORTISONE
     Indication: Pituitary tumour
     Route: 065
     Dates: start: 201906, end: 202004
  7. HYDROCORTISONE [Suspect]
     Active Substance: HYDROCORTISONE\HYDROCORTISONE ACETATE
     Indication: Pituitary tumour
     Route: 065
     Dates: start: 201906, end: 202004

REACTIONS (3)
  - Drug ineffective [Unknown]
  - Toxicity to various agents [Unknown]
  - Nausea [Unknown]
